FAERS Safety Report 15318983 (Version 1)
Quarter: 2018Q3

REPORT INFORMATION
  Report Type: Spontaneous
  Country: US (occurrence: US)
  Receive Date: 20180820
  Receipt Date: 20180820
  Transmission Date: 20181010
  Serious: No
  Sender: FDA-Public Use
  Company Number: None

PATIENT
  Age: 55 Year
  Sex: Male
  Weight: 86.4 kg

DRUGS (14)
  1. LANTUS SOLOSTAR [Suspect]
     Active Substance: INSULIN GLARGINE
     Indication: DIABETES MELLITUS
     Dosage: ?          QUANTITY:1 INJECTION(S);?
     Route: 058
     Dates: start: 20180609, end: 20180815
  2. HUMALOG KWIKPEN [Suspect]
     Active Substance: INSULIN LISPRO
     Indication: DIABETES MELLITUS
     Dosage: ?          OTHER FREQUENCY:WITH MEALS;?
     Route: 058
     Dates: start: 20180609, end: 20180815
  3. GABAPENTIN. [Concomitant]
     Active Substance: GABAPENTIN
  4. VITAMIN D2 [Concomitant]
     Active Substance: ERGOCALCIFEROL
  5. LANTUS SOLOSTAR U?100 INSULIN [Concomitant]
  6. EXCEDERIN [Concomitant]
  7. CODEINE SULFATE. [Concomitant]
     Active Substance: CODEINE SULFATE
  8. MELOXICAM. [Concomitant]
     Active Substance: MELOXICAM
  9. LISINOPRIL. [Concomitant]
     Active Substance: LISINOPRIL
  10. FLUCONAZOLE. [Concomitant]
     Active Substance: FLUCONAZOLE
  11. DEXAMETHASONE. [Concomitant]
     Active Substance: DEXAMETHASONE
  12. HUMALOG KWIKPEN [Concomitant]
     Active Substance: INSULIN LISPRO
  13. PEN NEEDLE [Concomitant]
  14. DIAZEPAM. [Concomitant]
     Active Substance: DIAZEPAM

REACTIONS (6)
  - Thinking abnormal [None]
  - Blood glucose abnormal [None]
  - Anger [None]
  - Hyperhidrosis [None]
  - Heart rate decreased [None]
  - Abnormal behaviour [None]

NARRATIVE: CASE EVENT DATE: 20180609
